FAERS Safety Report 21349633 (Version 1)
Quarter: 2022Q3

REPORT INFORMATION
  Report Type: Report from Study
  Country: US (occurrence: US)
  Receive Date: 20220919
  Receipt Date: 20220919
  Transmission Date: 20221026
  Serious: Yes (Other)
  Sender: FDA-Public Use
  Company Number: US-GILEAD-2022-0595407

PATIENT
  Age: 82 Year
  Sex: Female
  Weight: 99.773 kg

DRUGS (1)
  1. AMBRISENTAN [Suspect]
     Active Substance: AMBRISENTAN
     Indication: Pulmonary arterial hypertension
     Dosage: 10 MG, QD
     Route: 048
     Dates: start: 20200722

REACTIONS (6)
  - Choking [Unknown]
  - Dyspnoea [Unknown]
  - Hypoacusis [Unknown]
  - Ear discomfort [Unknown]
  - Unevaluable event [Unknown]
  - Intentional dose omission [Unknown]

NARRATIVE: CASE EVENT DATE: 20200809
